FAERS Safety Report 5515951-4 (Version None)
Quarter: 2007Q4

REPORT INFORMATION
  Report Type: 
  Country: None (occurrence: None)
  Receive Date: 20071114
  Receipt Date: 20071102
  Transmission Date: 20080405
  Serious: Yes (Other)
  Sender: FDA-Public Use
  Company Number: CH-ROCHE-529637

PATIENT
  Age: 45 Year
  Sex: Male

DRUGS (4)
  1. VALIUM [Suspect]
     Indication: DRUG USE FOR UNKNOWN INDICATION
     Route: 048
  2. BENERVA [Suspect]
     Indication: ESSENTIAL HYPERTENSION
     Route: 048
  3. NEXIUM [Suspect]
     Indication: DRUG USE FOR UNKNOWN INDICATION
     Route: 048
  4. PRINZIDE [Suspect]
     Route: 048

REACTIONS (2)
  - ANGIOEDEMA [None]
  - RASH [None]
